FAERS Safety Report 12248629 (Version 1)
Quarter: 2016Q2

REPORT INFORMATION
  Report Type: Spontaneous
  Country: US (occurrence: None)
  Receive Date: 20160407
  Receipt Date: 20160407
  Transmission Date: 20160815
  Serious: No
  Sender: FDA-Public Use
  Company Number: None

PATIENT
  Age: 35 Year
  Sex: Male
  Weight: 108.86 kg

DRUGS (3)
  1. BELSOMRA [Suspect]
     Active Substance: SUVOREXANT
     Indication: SLEEP DISORDER
     Route: 048
     Dates: start: 20160406, end: 20160406
  2. NAPROXIN [Concomitant]
     Active Substance: NAPROXEN
  3. XARELTO [Concomitant]
     Active Substance: RIVAROXABAN

REACTIONS (5)
  - Abnormal sleep-related event [None]
  - Sleep talking [None]
  - Memory impairment [None]
  - Aggression [None]
  - Dyssomnia [None]

NARRATIVE: CASE EVENT DATE: 20160406
